FAERS Safety Report 10624859 (Version 2)
Quarter: 2014Q4

REPORT INFORMATION
  Report Type: Spontaneous
  Country: DE (occurrence: DE)
  Receive Date: 20141204
  Receipt Date: 20141230
  Transmission Date: 20150529
  Serious: Yes (Other)
  Sender: FDA-Public Use
  Company Number: DE-BRISTOL-MYERS SQUIBB COMPANY-21652904

PATIENT
  Age: 65 Year
  Sex: Male
  Weight: 81 kg

DRUGS (18)
  1. ELIQUIS [Suspect]
     Active Substance: APIXABAN
     Indication: CEREBROVASCULAR ACCIDENT PROPHYLAXIS
     Dosage: 10 MG, QD
     Route: 048
     Dates: start: 20140416
  2. TAMSULOSIN HCL [Concomitant]
     Active Substance: TAMSULOSIN
  3. METOPROLOL SUCCINATE. [Concomitant]
     Active Substance: METOPROLOL SUCCINATE
  4. AMIODARONE [Concomitant]
     Active Substance: AMIODARONE
  5. CLEXANE [Concomitant]
     Active Substance: ENOXAPARIN SODIUM
  6. SIMVABETA [Concomitant]
     Active Substance: SIMVASTATIN
  7. PHENPROCOUMON [Concomitant]
     Active Substance: PHENPROCOUMON
  8. FORMOTEROL [Concomitant]
     Active Substance: FORMOTEROL
  9. RAMIPRIL. [Concomitant]
     Active Substance: RAMIPRIL
  10. HYDROCHLOROTHIAZIDE. [Concomitant]
     Active Substance: HYDROCHLOROTHIAZIDE
  11. VOMEX A [Concomitant]
     Active Substance: DIMENHYDRINATE
  12. ASTONIN-H [Concomitant]
  13. CETIRIZINE [Concomitant]
     Active Substance: CETIRIZINE HYDROCHLORIDE
  14. THYROXINE [Concomitant]
     Active Substance: LEVOTHYROXINE
  15. OMEPRAZOL E [Concomitant]
     Active Substance: OMEPRAZOLE
  16. KALITRANS [Concomitant]
     Active Substance: POTASSIUM CHLORIDE
  17. HYDROCORTISONE. [Concomitant]
     Active Substance: HYDROCORTISONE
  18. SALBUTAMOL [Concomitant]
     Active Substance: ALBUTEROL

REACTIONS (4)
  - Abdominal symptom [Recovered/Resolved]
  - Malaise [Recovered/Resolved]
  - Amylase increased [Recovered/Resolved]
  - Hepatic enzyme increased [Recovered/Resolved]

NARRATIVE: CASE EVENT DATE: 201409
